FAERS Safety Report 7546516-0 (Version None)
Quarter: 2011Q2

REPORT INFORMATION
  Report Type: 
  Country: None (occurrence: None)
  Receive Date: 20110614
  Receipt Date: 20110610
  Transmission Date: 20111010
  Serious: Yes (Death, Life-Threatening, Other)
  Sender: FDA-Public Use
  Company Number: JP-SANOFI-AVENTIS-2011SA021923

PATIENT
  Age: 73 Year
  Sex: Male
  Weight: 54.5 kg

DRUGS (23)
  1. SALAGEN [Concomitant]
     Route: 048
     Dates: start: 20110316, end: 20110330
  2. EMPYNASE [Concomitant]
     Indication: PAIN
     Route: 048
     Dates: start: 20110313, end: 20110330
  3. WARFARIN SODIUM [Concomitant]
     Route: 048
     Dates: start: 20110301
  4. ALLOPURINOL [Concomitant]
     Route: 048
     Dates: start: 20110301
  5. TAXOTERE [Suspect]
     Route: 013
     Dates: start: 20110324, end: 20110324
  6. MAGNESIUM OXIDE [Concomitant]
     Indication: CONSTIPATION
     Route: 048
     Dates: start: 20110322, end: 20110325
  7. CLARITHROMYCIN [Concomitant]
     Indication: SINUSITIS
     Route: 048
     Dates: start: 20110313, end: 20110330
  8. OXYCONTIN [Concomitant]
     Indication: PAIN
     Route: 048
     Dates: start: 20110325, end: 20110402
  9. LOXONIN [Concomitant]
     Indication: PAIN
     Route: 048
     Dates: start: 20110316, end: 20110330
  10. PRAVASTATIN SODIUM [Concomitant]
     Route: 048
     Dates: start: 20110301
  11. MUCODYNE [Concomitant]
     Indication: SINUSITIS
     Route: 048
     Dates: start: 20110313, end: 20110330
  12. ALDACTONE [Concomitant]
     Route: 048
     Dates: start: 20110301
  13. RABEPRAZOLE SODIUM [Concomitant]
     Route: 048
     Dates: start: 20110301
  14. FERROUS CITRATE [Concomitant]
     Route: 048
     Dates: start: 20110301
  15. ASPIRIN [Concomitant]
     Route: 048
     Dates: start: 20110301
  16. LOXONIN [Concomitant]
     Route: 048
     Dates: start: 20110301
  17. LASIX [Concomitant]
     Route: 048
     Dates: start: 20110301
  18. DEXAMETHASONE SODIUM PHOSPHATE [Concomitant]
     Indication: PROPHYLAXIS
     Route: 042
     Dates: start: 20110324, end: 20110329
  19. KALIMATE [Concomitant]
     Indication: HYPERKALAEMIA
     Route: 048
     Dates: start: 20110322, end: 20110327
  20. REBAMIPIDE [Concomitant]
     Indication: PAIN
     Route: 048
     Dates: start: 20110316, end: 20110330
  21. CARVEDILOL [Concomitant]
     Route: 048
     Dates: start: 20110301
  22. FLUOROURACIL [Suspect]
     Route: 042
     Dates: start: 20110325, end: 20110329
  23. REBAMIPIDE [Concomitant]
     Route: 048
     Dates: start: 20110301

REACTIONS (7)
  - MELAENA [None]
  - MUCOSAL INFLAMMATION [None]
  - MOUTH HAEMORRHAGE [None]
  - BONE MARROW FAILURE [None]
  - WHITE BLOOD CELL COUNT DECREASED [None]
  - INFECTION [None]
  - THROMBOCYTOPENIA [None]
